FAERS Safety Report 6182927-6 (Version None)
Quarter: 2009Q2

REPORT INFORMATION
  Report Type: 
  Country: None (occurrence: None)
  Receive Date: 20090507
  Receipt Date: 20090429
  Transmission Date: 20091009
  Serious: Yes (Hospitalization, Other)
  Sender: FDA-Public Use
  Company Number: US-ELI_LILLY_AND_COMPANY-US200903002734

PATIENT
  Sex: Female
  Weight: 64.399 kg

DRUGS (6)
  1. FORTEO [Suspect]
     Dosage: 20 UG, DAILY (1/D)
     Dates: start: 20080502
  2. CALCIUM [Concomitant]
     Dosage: 1200 MG, DAILY (1/D)
     Route: 048
  3. ENOXAPARIN SODIUM [Concomitant]
     Dosage: 80 MG, OTHER
     Route: 058
  4. WARFARIN SODIUM [Concomitant]
     Dosage: 9 MG, 3/W
  5. WARFARIN SODIUM [Concomitant]
     Dosage: 10 MG, OTHER
  6. VITAMIN D [Concomitant]
     Dosage: 400 MG, DAILY (1/D)
     Route: 048

REACTIONS (3)
  - ANGER [None]
  - HEPATIC HAEMATOMA [None]
  - HEPATIC LESION [None]
